FAERS Safety Report 6524084-X (Version None)
Quarter: 2009Q4

REPORT INFORMATION
  Report Type: 
  Country: None (occurrence: None)
  Receive Date: 20091231
  Receipt Date: 20091221
  Transmission Date: 20100525
  Serious: Yes (Other)
  Sender: FDA-Public Use
  Company Number: PHHY2009CA57592

PATIENT
  Sex: Female

DRUGS (12)
  1. CLOZARIL [Suspect]
     Indication: SCHIZOPHRENIA
     Dosage: 100 MG, UNK
     Route: 048
     Dates: start: 20091029
  2. CARVEDILOL [Concomitant]
  3. DOCUSATE [Concomitant]
  4. MOBICOX [Concomitant]
  5. RISPERIDONE [Concomitant]
     Dosage: 1 MG, BID
  6. EFFEXOR XR [Concomitant]
     Dosage: 150 MG AM
  7. VITAMIN D [Concomitant]
  8. CALCIUM [Concomitant]
  9. SENOKOT                                 /UNK/ [Concomitant]
  10. VALIUM [Concomitant]
  11. FLUDROCORTISONE [Concomitant]
     Dosage: 0.1 MG DAILY
  12. EPIVAL [Concomitant]
     Dosage: 125 MG, QID

REACTIONS (2)
  - HAEMOGLOBIN DECREASED [None]
  - HAEMOLYTIC ANAEMIA [None]
